FAERS Safety Report 5680289-1 (Version None)
Quarter: 2008Q1

REPORT INFORMATION
  Report Type: 
  Country: None (occurrence: None)
  Receive Date: 20080326
  Receipt Date: 20080321
  Transmission Date: 20080703
  Serious: Yes (Hospitalization)
  Sender: FDA-Public Use
  Company Number: JP-AVENTIS-200810419JP

PATIENT
  Age: 63 Year
  Sex: Male

DRUGS (5)
  1. AMARYL [Suspect]
     Indication: DIABETES MELLITUS
     Route: 048
     Dates: start: 20060424
  2. LANTUS [Suspect]
     Indication: DIABETES MELLITUS
     Route: 058
     Dates: start: 20041108
  3. LASIX [Suspect]
     Route: 048
     Dates: start: 20060626
  4. NOVOLIN R [Concomitant]
     Indication: DIABETES MELLITUS
  5. MAGNESIUM OXIDE [Concomitant]
     Indication: GASTRITIS

REACTIONS (1)
  - CONFUSIONAL STATE [None]
